FAERS Safety Report 8960230 (Version 1)
Quarter: 2012Q4

REPORT INFORMATION
  Report Type: 
  Country: NL (occurrence: NL)
  Receive Date: 20121212
  Receipt Date: 20121212
  Transmission Date: 20130627
  Serious: Yes (Hospitalization)
  Sender: FDA-Public Use
  Company Number: NL-PFIZER INC-2012308450

PATIENT
  Age: 65 Year
  Sex: Male
  Weight: 97 kg

DRUGS (19)
  1. GENOTROPIN [Suspect]
     Dosage: 0.1 mg, 1x/day, 7 Injections/week
     Route: 058
     Dates: start: 20020516
  2. THYROX [Concomitant]
     Indication: TSH DECREASED
     Dosage: UNK
  3. THYROX [Concomitant]
     Indication: PRIMARY HYPOTHYROIDISM
  4. LANTUS [Concomitant]
     Indication: DIABETES MELLITUS
     Dosage: UNK
  5. METFORMIN [Concomitant]
     Indication: DIABETES MELLITUS
     Dosage: UNK
  6. LEVOTHYROXINE [Concomitant]
     Indication: TSH DECREASED
     Dosage: UNK
     Dates: start: 20000115
  7. LEVOTHYROXINE [Concomitant]
     Indication: PRIMARY HYPOTHYROIDISM
  8. HYDROCORTISONE [Concomitant]
     Indication: ACTH DECREASED
     Dosage: UNK
     Dates: start: 20000115
  9. DIAMICRON [Concomitant]
     Indication: DIABETES MELLITUS
     Dosage: UNK
     Dates: start: 20000215
  10. DEPAKINE [Concomitant]
     Indication: EPILEPSY
     Dosage: UNK
     Dates: start: 20000215
  11. DEPAKINE [Concomitant]
     Indication: CONVULSIONS
  12. DEPAKINE [Concomitant]
     Indication: SEIZURE
  13. RANITIDINE [Concomitant]
     Dosage: UNK
     Dates: start: 20000701
  14. TESTOSTERONE [Concomitant]
     Indication: LUTEINISING HORMONE DEFICIENCY
     Dosage: UNK
     Dates: start: 20000715
  15. TESTOSTERONE [Concomitant]
     Indication: FOLLICLE-STIMULATING HORMONE DEFICIENCY
  16. TESTOSTERONE [Concomitant]
     Indication: TESTICULAR HYPOGONADISM
  17. SELOKEN ZOC [Concomitant]
     Indication: ANGINA PECTORIS
     Dosage: UNK
     Dates: start: 20000915
  18. MONO-CEDOCARD [Concomitant]
     Indication: ANGINA PECTORIS
     Dosage: UNK
     Dates: start: 20000915
  19. SELEKTINE [Concomitant]
     Indication: HYPERCHOLESTEROLAEMIA
     Dosage: UNK
     Dates: start: 20000915

REACTIONS (1)
  - Cardiac disorder [Unknown]
